FAERS Safety Report 5724832-2 (Version None)
Quarter: 2008Q2

REPORT INFORMATION
  Report Type: 
  Country: None (occurrence: None)
  Receive Date: 20080429
  Receipt Date: 20080417
  Transmission Date: 20081010
  Serious: Yes (Death, Hospitalization)
  Sender: FDA-Public Use
  Company Number: 2008JP001666

PATIENT
  Age: 79 Year
  Sex: Male

DRUGS (13)
  1. TACROLIMUS [Suspect]
     Indication: RHEUMATOID ARTHRITIS
     Dosage: 0.5 MG D, ORAL
     Route: 048
     Dates: start: 20070308
  2. PREDNISOLONE TAB [Concomitant]
  3. RHEUMATREX [Concomitant]
  4. VOLTAREN (DICLOFENAC) TAPE [Concomitant]
  5. BIOLACTIS (LACTOBACILLUS) [Concomitant]
  6. FERROMIA (FERROUS CITRATE) TABLET [Concomitant]
  7. ISCOTIN (ISONIAZID) TABLET [Concomitant]
  8. URSO (URSODEOXYCHOLIC ACID) TABLET [Concomitant]
  9. ACINON (NIZATIDINE) TABLET [Concomitant]
  10. BASEN (VOGLIBOSE) TABLET [Concomitant]
  11. NU-LORTAN (LOSARTAN POTASSIUM) TABLET [Concomitant]
  12. AMLODIN (AMLODIPINE BESILATE) TABLET [Concomitant]
  13. AMARYL [Concomitant]

REACTIONS (9)
  - ALTERED STATE OF CONSCIOUSNESS [None]
  - BLOOD PRESSURE SYSTOLIC DECREASED [None]
  - CHEST PAIN [None]
  - DECREASED APPETITE [None]
  - FALL [None]
  - LIVER DISORDER [None]
  - MULTI-ORGAN FAILURE [None]
  - OXYGEN SATURATION DECREASED [None]
  - RESPIRATORY ARREST [None]
